FAERS Safety Report 11240410 (Version 1)
Quarter: 2015Q3

REPORT INFORMATION
  Report Type: Spontaneous
  Country: US (occurrence: None)
  Receive Date: 20150701
  Receipt Date: 20150701
  Transmission Date: 20151125
  Serious: Yes (Life-Threatening, Hospitalization)
  Sender: FDA-Public Use
  Company Number: None

PATIENT
  Age: 60 Year
  Sex: Male
  Weight: 104.5 kg

DRUGS (1)
  1. DAPTOMYCIN. [Suspect]
     Active Substance: DAPTOMYCIN
     Indication: INFECTION
     Dosage: UD
     Route: 042
     Dates: start: 20150412, end: 20150414

REACTIONS (4)
  - Hypoaesthesia [None]
  - Myositis [None]
  - Paraesthesia [None]
  - Back pain [None]

NARRATIVE: CASE EVENT DATE: 20150414
